FAERS Safety Report 7439675-1 (Version None)
Quarter: 2011Q2

REPORT INFORMATION
  Report Type: 
  Country: None (occurrence: None)
  Receive Date: 20110427
  Receipt Date: 20110414
  Transmission Date: 20111010
  Serious: Yes (Other)
  Sender: FDA-Public Use
  Company Number: PHHY2011US32542

PATIENT
  Sex: Female

DRUGS (13)
  1. LOPRESSOR [Concomitant]
  2. IMDUR [Concomitant]
  3. PLAVIX [Concomitant]
  4. CITALOPRAM [Concomitant]
  5. SINGULAIR [Concomitant]
  6. PRILOSEC [Concomitant]
  7. BENICAR HCT [Concomitant]
  8. LIPITOR [Concomitant]
  9. SPIRIVA [Concomitant]
  10. CALCIUM [Concomitant]
  11. MULTI-VITAMINS [Concomitant]
  12. RECLAST [Suspect]
     Dosage: 5 MG /100ML, YEARLY
     Route: 042
     Dates: start: 20110311
  13. ALBUTEROL [Concomitant]

REACTIONS (16)
  - BEDRIDDEN [None]
  - HEADACHE [None]
  - NAUSEA [None]
  - PNEUMONIA [None]
  - NECK PAIN [None]
  - OROPHARYNGEAL PAIN [None]
  - PYREXIA [None]
  - ARTHRALGIA [None]
  - PAIN IN JAW [None]
  - BACK PAIN [None]
  - DYSPNOEA [None]
  - MYALGIA [None]
  - MALAISE [None]
  - CHILLS [None]
  - BALANCE DISORDER [None]
  - ABDOMINAL DISCOMFORT [None]
